FAERS Safety Report 4924447-X (Version None)
Quarter: 2006Q1

REPORT INFORMATION
  Report Type: 
  Country: None (occurrence: None)
  Receive Date: 20060221
  Receipt Date: 20060207
  Transmission Date: 20060701
  Serious: Yes (Hospitalization, Other)
  Sender: FDA-Public Use
  Company Number: 2005135832

PATIENT
  Age: 47 Year
  Sex: Male
  Weight: 79.3795 kg

DRUGS (2)
  1. VIAGRA [Suspect]
     Indication: ERECTILE DYSFUNCTION
     Dosage: (100 MG, AS NECESSARY)
     Dates: start: 20030101
  2. COLLAGEN (COLLAGEN) [Concomitant]

REACTIONS (4)
  - CATHETER RELATED COMPLICATION [None]
  - DRUG INEFFECTIVE [None]
  - DYSURIA [None]
  - PENILE PROSTHESIS INSERTION [None]
